FAERS Safety Report 5941490-2 (Version None)
Quarter: 2008Q4

REPORT INFORMATION
  Report Type: 
  Country: None (occurrence: None)
  Receive Date: 20081105
  Receipt Date: 20081024
  Transmission Date: 20090506
  Serious: Yes (Other)
  Sender: FDA-Public Use
  Company Number: DE-PURDUE-DEU_2008_0004789

PATIENT
  Age: 77 Year
  Sex: Male

DRUGS (2)
  1. OXYGESIC 20 MG [Suspect]
     Indication: PAIN
     Dosage: 20 MG, BID
     Route: 048
  2. DURAGESIC-100 [Suspect]
     Indication: PAIN
     Dosage: 25 MCG, Q1H
     Route: 062

REACTIONS (1)
  - WEIGHT DECREASED [None]
